FAERS Safety Report 4834171-X (Version None)
Quarter: 2005Q4

REPORT INFORMATION
  Report Type: 
  Country: None (occurrence: None)
  Receive Date: 20051118
  Receipt Date: 20051118
  Transmission Date: 20060501
  Serious: Yes (Other)
  Sender: FDA-Public Use
  Company Number: None

PATIENT
  Age: 54 Year
  Sex: Male
  Weight: 108.9 kg

DRUGS (8)
  1. RAMIPRIL [Suspect]
  2. FLUNISOLIDE [Concomitant]
  3. OMEPRAZOLE [Concomitant]
  4. VALSARTAN [Concomitant]
  5. ASPIRIN [Concomitant]
  6. CLOPIDOGREL BISULFATE [Concomitant]
  7. METOPROLOL TARTRATE [Concomitant]
  8. SIMVASTATIN [Concomitant]

REACTIONS (1)
  - COUGH [None]
